FAERS Safety Report 20916412 (Version 1)
Quarter: 2022Q2

REPORT INFORMATION
  Report Type: Spontaneous
  Country: US (occurrence: US)
  Receive Date: 20220604
  Receipt Date: 20220604
  Transmission Date: 20220720
  Serious: No
  Sender: FDA-Public Use
  Company Number: US-ELI_LILLY_AND_COMPANY-US202206001922

PATIENT
  Sex: Female
  Weight: 49.433 kg

DRUGS (3)
  1. ADCIRCA [Suspect]
     Active Substance: TADALAFIL
     Indication: Pulmonary arterial hypertension
     Dosage: UNK UNK, UNKNOWN
     Route: 065
  2. TYVASO [Suspect]
     Active Substance: TREPROSTINIL
     Indication: Pulmonary arterial hypertension
     Dosage: UNK UNK, QID (3-12 BREATHS INHALED)
     Route: 055
     Dates: start: 20220516
  3. TYVASO [Suspect]
     Active Substance: TREPROSTINIL
     Dosage: UNK UNK, QID ( (2 BREATHS INHALED))
     Route: 055

REACTIONS (3)
  - Decreased appetite [Unknown]
  - Rhinorrhoea [Unknown]
  - Peripheral swelling [Unknown]
